FAERS Safety Report 8909729 (Version 1)
Quarter: 2012Q4

REPORT INFORMATION
  Report Type: 
  Country: US (occurrence: US)
  Receive Date: 20121115
  Receipt Date: 20121115
  Transmission Date: 20130627
  Serious: No
  Sender: FDA-Public Use
  Company Number: US-009507513-1211USA006242

PATIENT
  Sex: Female
  Weight: 56.69 kg

DRUGS (5)
  1. PEGINTRON [Suspect]
     Dosage: 120 Microgram, qw
     Route: 058
  2. VICTRELIS [Suspect]
     Dosage: 4 DF, tid
     Route: 048
  3. PEG-INTRON [Concomitant]
     Dosage: 50 Microgram, UNK
     Route: 058
  4. RIBAPAK [Concomitant]
     Dosage: 800/day
     Route: 048
  5. RIBAPAK [Concomitant]
     Dosage: 800/day

REACTIONS (4)
  - Heart rate increased [Unknown]
  - Musculoskeletal discomfort [Unknown]
  - Discomfort [Unknown]
  - Impaired work ability [Unknown]
